FAERS Safety Report 23808350 (Version 4)
Quarter: 2024Q2

REPORT INFORMATION
  Report Type: Spontaneous
  Country: CA (occurrence: CA)
  Receive Date: 20240502
  Receipt Date: 20240603
  Transmission Date: 20240715
  Serious: Yes (Hospitalization, Other)
  Sender: FDA-Public Use
  Company Number: CA-MYLANLABS-2024M1039051

PATIENT
  Age: 87 Year
  Sex: Male

DRUGS (5)
  1. VALPROIC ACID [Suspect]
     Active Substance: VALPROIC ACID
     Indication: Partial seizures
     Dosage: 1000 MILLIGRAM, QD
     Route: 065
  2. VALPROIC ACID [Suspect]
     Active Substance: VALPROIC ACID
     Dosage: UNK(REDUCED)
     Route: 065
  3. CLOBAZAM [Suspect]
     Active Substance: CLOBAZAM
     Indication: Partial seizures
     Dosage: 30 MILLIGRAM, QD
     Route: 065
  4. LEVETIRACETAM [Suspect]
     Active Substance: LEVETIRACETAM
     Indication: Partial seizures
     Dosage: 750 MILLIGRAM, BID
     Route: 065
  5. LEVETIRACETAM [Suspect]
     Active Substance: LEVETIRACETAM
     Dosage: 3000 MILLIGRAM, QD
     Route: 065

REACTIONS (4)
  - Delirium [Recovering/Resolving]
  - Fall [Recovering/Resolving]
  - Gait disturbance [Recovering/Resolving]
  - Moaning [Unknown]
